FAERS Safety Report 5235130-8 (Version None)
Quarter: 2007Q1

REPORT INFORMATION
  Report Type: 
  Country: None (occurrence: None)
  Receive Date: 20070207
  Receipt Date: 20070124
  Transmission Date: 20070707
  Serious: Yes (Life-Threatening)
  Sender: FDA-Public Use
  Company Number: 15574

PATIENT
  Age: 72 Year
  Sex: Male

DRUGS (5)
  1. CYTARABINE [Suspect]
     Indication: ACUTE MYELOID LEUKAEMIA
     Dosage: 20 MG/M2 DAILY SC
     Route: 058
     Dates: start: 20060802
  2. ACETAMINOPHEN [Concomitant]
  3. FENTANYL [Concomitant]
  4. MAGNESIUM OXIDE [Concomitant]
  5. DIGOXIN [Concomitant]

REACTIONS (9)
  - CULTURE POSITIVE [None]
  - DISEASE PROGRESSION [None]
  - EMPYEMA [None]
  - HAEMATOCRIT DECREASED [None]
  - HAEMOGLOBIN DECREASED [None]
  - HAEMOTHORAX [None]
  - KLEBSIELLA INFECTION [None]
  - PNEUMONIA [None]
  - REFUSAL OF TREATMENT BY PATIENT [None]
